FAERS Safety Report 16660153 (Version 5)
Quarter: 2019Q3

REPORT INFORMATION
  Report Type: Report from Study
  Country: US (occurrence: US)
  Receive Date: 20190802
  Receipt Date: 20190826
  Transmission Date: 20191004
  Serious: Yes (Hospitalization)
  Sender: FDA-Public Use
  Company Number: US-SHIRE-US201924761

PATIENT
  Sex: Female

DRUGS (2)
  1. GATTEX [Suspect]
     Active Substance: TEDUGLUTIDE\WATER
     Indication: SHORT-BOWEL SYNDROME
     Dosage: 2.4 MILLIGRAM, 1X/DAY:QD
     Route: 058
     Dates: start: 20190523
  2. GATTEX [Suspect]
     Active Substance: TEDUGLUTIDE\WATER
     Dosage: 2.4 MILLIGRAM, 1X/DAY:QD
     Route: 058
     Dates: start: 20190606

REACTIONS (3)
  - Chronic obstructive pulmonary disease [Unknown]
  - Abdominal pain [Unknown]
  - Dyspnoea [Unknown]
